FAERS Safety Report 6046667-6 (Version None)
Quarter: 2009Q1

REPORT INFORMATION
  Report Type: 
  Country: None (occurrence: None)
  Receive Date: 20090122
  Receipt Date: 20090115
  Transmission Date: 20090719
  Serious: Yes (Hospitalization)
  Sender: FDA-Public Use
  Company Number: FR-ASTRAZENECA-2009CG00178

PATIENT
  Age: 58 Year
  Sex: Male

DRUGS (5)
  1. DIPRIVAN [Suspect]
     Indication: INDUCTION OF ANAESTHESIA
     Route: 042
     Dates: start: 20061026, end: 20061026
  2. SUFENTA PRESERVATIVE FREE [Suspect]
     Indication: INDUCTION OF ANAESTHESIA
     Dates: start: 20061026, end: 20061026
  3. MIDAZOLAM HCL [Suspect]
     Indication: INDUCTION OF ANAESTHESIA
     Dates: start: 20061026, end: 20061026
  4. CELOCURIN [Suspect]
     Indication: INDUCTION OF ANAESTHESIA
     Dates: start: 20061026
  5. CEFOTAXIME ^ABBOTT^ [Suspect]
     Dates: start: 20061026, end: 20061026

REACTIONS (1)
  - SHOCK [None]
